FAERS Safety Report 22100451 (Version 2)
Quarter: 2023Q2

REPORT INFORMATION
  Report Type: Spontaneous
  Country: US (occurrence: US)
  Receive Date: 20230316
  Receipt Date: 20230412
  Transmission Date: 20230722
  Serious: No
  Sender: FDA-Public Use
  Company Number: US-BAUSCHBL-2023BNL002092

PATIENT
  Age: 82 Year
  Sex: Male

DRUGS (5)
  1. ALAWAY [Suspect]
     Active Substance: KETOTIFEN FUMARATE
     Indication: Eye allergy
     Dosage: AN YEAR AGO
     Route: 047
     Dates: start: 2022
  2. TIMOLOL [Concomitant]
     Active Substance: TIMOLOL
     Indication: Intraocular pressure test
     Dosage: IT^S BEEN 2 YEARS, ONE DROP LEFT EYE IN THE MORNING
     Route: 047
     Dates: start: 2021
  3. TIMOLOL [Concomitant]
     Active Substance: TIMOLOL
     Indication: Intraocular pressure test
  4. LATANOPROST [Concomitant]
     Active Substance: LATANOPROST
     Indication: Intraocular pressure test
     Dosage: IT^S BEEN 2 YEARS, ONE DROP IN EACH EYE AT NIGHT
     Route: 047
     Dates: start: 2021
  5. LATANOPROST [Concomitant]
     Active Substance: LATANOPROST
     Indication: Intraocular pressure test

REACTIONS (3)
  - Instillation site irritation [Recovered/Resolved]
  - Instillation site pain [Recovered/Resolved]
  - Expired product administered [Unknown]
